FAERS Safety Report 8808667 (Version 2)
Quarter: 2012Q4

REPORT INFORMATION
  Report Type: 
  Country: AT (occurrence: AT)
  Receive Date: 20120926
  Receipt Date: 20121009
  Transmission Date: 20130627
  Serious: Yes (Other)
  Sender: FDA-Public Use
  Company Number: PHHY2012AT083352

PATIENT
  Sex: Female

DRUGS (1)
  1. ACLASTA [Suspect]
     Indication: BONE DENSITY DECREASED
     Dosage: UNK UKN, UNK
     Route: 042
     Dates: start: 201206

REACTIONS (2)
  - Hypokinesia [Recovering/Resolving]
  - Pyrexia [Recovering/Resolving]
